FAERS Safety Report 19962573 (Version 1)
Quarter: 2021Q4

REPORT INFORMATION
  Report Type: Spontaneous
  Country: US (occurrence: US)
  Receive Date: 20211018
  Receipt Date: 20211018
  Transmission Date: 20220303
  Serious: Yes (Other)
  Sender: FDA-Public Use
  Company Number: US-BLUEPRINT MEDICINES CORPORATION-SP-US-2021-001823

PATIENT
  Age: 60 Year
  Sex: Male

DRUGS (1)
  1. AYVAKIT [Suspect]
     Active Substance: AVAPRITINIB
     Indication: Gastrointestinal stromal tumour
     Dosage: TAKE 1 TAB DAILY X 9 DAYS THEN OFF 3 DAYS AND REPEAT CYCLE
     Route: 048

REACTIONS (2)
  - Hallucinations, mixed [Unknown]
  - Off label use [Unknown]

NARRATIVE: CASE EVENT DATE: 20210816
